FAERS Safety Report 5974302-1 (Version None)
Quarter: 2008Q4

REPORT INFORMATION
  Report Type: 
  Country: None (occurrence: None)
  Receive Date: 20081201
  Receipt Date: 20081127
  Transmission Date: 20090506
  Serious: Yes (Other)
  Sender: FDA-Public Use
  Company Number: SE-PFIZER INC-2008027947

PATIENT
  Sex: Male

DRUGS (1)
  1. XANOR [Suspect]
     Indication: NEUROSIS

REACTIONS (2)
  - DRY MOUTH [None]
  - PERIODONTITIS [None]
